FAERS Safety Report 11673952 (Version 2)
Quarter: 2015Q4

REPORT INFORMATION
  Report Type: Spontaneous
  Country: PT (occurrence: PT)
  Receive Date: 20151028
  Receipt Date: 20151105
  Transmission Date: 20160304
  Serious: Yes (Other)
  Sender: FDA-Public Use
  Company Number: PT-WATSON-2015-23032

PATIENT
  Age: 56 Year
  Sex: Female

DRUGS (1)
  1. LIDOCAINE (UNKNOWN) [Suspect]
     Active Substance: LIDOCAINE
     Indication: LOCAL ANAESTHESIA
     Dosage: UNK
     Route: 061

REACTIONS (2)
  - Anaphylactic reaction [Unknown]
  - Asthma [Unknown]
